FAERS Safety Report 4436605-1 (Version None)
Quarter: 2004Q3

REPORT INFORMATION
  Report Type: 
  Country: None (occurrence: None)
  Receive Date: 20040830
  Receipt Date: 20040714
  Transmission Date: 20050211
  Serious: No
  Sender: FDA-Public Use
  Company Number: US-BRISTOL-MYERS SQUIBB COMPANY-12640991

PATIENT
  Sex: Female

DRUGS (1)
  1. ABILIFY [Suspect]

REACTIONS (6)
  - BALANCE DISORDER [None]
  - CONSTIPATION [None]
  - FATIGUE [None]
  - MYALGIA [None]
  - PRURITUS [None]
  - THINKING ABNORMAL [None]
